FAERS Safety Report 6340547-4 (Version None)
Quarter: 2009Q3

REPORT INFORMATION
  Report Type: 
  Country: None (occurrence: None)
  Receive Date: 20090904
  Receipt Date: 20090826
  Transmission Date: 20100115
  Serious: Yes (Death)
  Sender: FDA-Public Use
  Company Number: FR-JNJFOC-20090809416

PATIENT
  Age: 50 Year
  Sex: Male

DRUGS (4)
  1. ZALDIAR [Suspect]
     Indication: CERVICAL ROOT PAIN
     Dosage: END DATE: JUL-2009
     Route: 048
  2. PARACETAMOL [Concomitant]
     Route: 065
  3. IBUPROFEN [Concomitant]
     Route: 065
  4. SOLUPRED [Concomitant]
     Dosage: END DATE: JUL-2009  TREATMENT DURATION: 10 OR 15 DAYS
     Route: 065

REACTIONS (1)
  - SUDDEN DEATH [None]
